FAERS Safety Report 6130626-9 (Version None)
Quarter: 2009Q1

REPORT INFORMATION
  Report Type: 
  Country: None (occurrence: None)
  Receive Date: 20090325
  Receipt Date: 20090312
  Transmission Date: 20090719
  Serious: Yes (Other)
  Sender: FDA-Public Use
  Company Number: GB-TEVA-187855ISR

PATIENT
  Age: 37 Year
  Sex: Male

DRUGS (2)
  1. LORAZEPAM [Suspect]
     Indication: AGITATION
     Route: 048
  2. CLOZAPINE [Suspect]
     Route: 048
     Dates: start: 20051109

REACTIONS (5)
  - BLOOD CHOLESTEROL INCREASED [None]
  - FALL [None]
  - MONOPARESIS [None]
  - MUSCULAR WEAKNESS [None]
  - MYOCLONUS [None]
